FAERS Safety Report 5079166-9 (Version None)
Quarter: 2006Q3

REPORT INFORMATION
  Report Type: 
  Country: None (occurrence: None)
  Receive Date: 20060814
  Receipt Date: 20060712
  Transmission Date: 20061208
  Serious: Yes (Life-Threatening, Hospitalization)
  Sender: FDA-Public Use
  Company Number: JP-JPN-A200602605

PATIENT
  Age: 69 Year
  Sex: Female
  Weight: 41 kg

DRUGS (15)
  1. ZOVIRAX [Suspect]
     Indication: HERPES ZOSTER
     Dosage: 200MG PER DAY
     Route: 042
     Dates: start: 20060628, end: 20060704
  2. ALFAROL [Suspect]
     Indication: HYPOPARATHYROIDISM
     Dosage: .25MCG PER DAY
     Route: 048
     Dates: end: 20060710
  3. LOXOPROFEN SODIUM [Suspect]
     Indication: PAIN
     Dosage: 1.8MG THREE TIMES PER DAY
     Route: 048
     Dates: end: 20060710
  4. AMLODIN [Concomitant]
     Indication: HYPERTENSION
     Dosage: 5MG PER DAY
     Route: 048
     Dates: end: 20060710
  5. DIOVAN [Concomitant]
     Indication: HYPERTENSION
     Dosage: 80MG PER DAY
     Route: 048
     Dates: end: 20060710
  6. FERROUS CITRATE [Concomitant]
     Dosage: 100MG PER DAY
     Route: 048
     Dates: end: 20060710
  7. BISOPROLOL FUMARATE [Concomitant]
     Indication: TACHYCARDIA
     Dosage: 5MG UNKNOWN
     Route: 048
     Dates: end: 20060710
  8. LIPITOR [Concomitant]
     Dosage: 5MG UNKNOWN
     Route: 048
     Dates: end: 20060710
  9. ALKIXA [Concomitant]
     Indication: GASTRITIS
     Dosage: 1.8G UNKNOWN
     Route: 048
     Dates: end: 20060710
  10. AZUCURENIN S [Concomitant]
     Indication: GASTRITIS
     Dosage: 3G UNKNOWN
     Route: 048
     Dates: end: 20060710
  11. SULCAIN [Concomitant]
     Indication: GASTRITIS
     Dosage: 3G UNKNOWN
     Route: 048
     Dates: end: 20060710
  12. MAGNESIUM OXIDE [Concomitant]
     Indication: CONSTIPATION
     Dosage: 6G UNKNOWN
     Route: 048
     Dates: end: 20060710
  13. GLAKAY [Concomitant]
     Dosage: 45MG UNKNOWN
     Route: 048
     Dates: end: 20060710
  14. CARNACULIN [Concomitant]
     Indication: MENOPAUSAL SYMPTOMS
     Dosage: 150MG UNKNOWN
     Route: 048
     Dates: end: 20060710
  15. FLUNITRAZEPAM [Concomitant]
     Indication: INSOMNIA
     Dosage: 1MG UNKNOWN
     Route: 048
     Dates: end: 20060710

REACTIONS (12)
  - BLOOD CALCIUM INCREASED [None]
  - BLOOD CHLORIDE DECREASED [None]
  - BLOOD CREATININE INCREASED [None]
  - BLOOD MAGNESIUM INCREASED [None]
  - BLOOD POTASSIUM INCREASED [None]
  - BLOOD SODIUM DECREASED [None]
  - BLOOD UREA INCREASED [None]
  - DECREASED APPETITE [None]
  - ENCEPHALOPATHY [None]
  - MALAISE [None]
  - RENAL FAILURE ACUTE [None]
  - TUBULOINTERSTITIAL NEPHRITIS [None]
